FAERS Safety Report 21981193 (Version 4)
Quarter: 2023Q2

REPORT INFORMATION
  Report Type: Report from Study
  Country: DE (occurrence: DE)
  Receive Date: 20230211
  Receipt Date: 20230529
  Transmission Date: 20230722
  Serious: Yes (Hospitalization, Other)
  Sender: FDA-Public Use
  Company Number: DE-TAKEDA-2023TUS014685

PATIENT
  Age: 5 Year
  Sex: Female

DRUGS (12)
  1. TEDUGLUTIDE [Suspect]
     Active Substance: TEDUGLUTIDE
     Indication: Short-bowel syndrome
     Dosage: 0.75 MILLIGRAM, QD
     Route: 042
     Dates: start: 20220907
  2. TEDUGLUTIDE [Suspect]
     Active Substance: TEDUGLUTIDE
     Indication: Short-bowel syndrome
     Dosage: 0.75 MILLIGRAM, QD
     Route: 042
     Dates: start: 20220907
  3. TEDUGLUTIDE [Suspect]
     Active Substance: TEDUGLUTIDE
     Indication: Short-bowel syndrome
     Dosage: 0.75 MILLIGRAM, QD
     Route: 042
     Dates: start: 20220907
  4. TEDUGLUTIDE [Suspect]
     Active Substance: TEDUGLUTIDE
     Indication: Short-bowel syndrome
     Dosage: 0.75 MILLIGRAM, QD
     Route: 042
     Dates: start: 20220907
  5. AMOXICILLIN\CLAVULANIC ACID [Concomitant]
     Active Substance: AMOXICILLIN\CLAVULANIC ACID
     Indication: Gastrointestinal motility disorder
     Dosage: 150.00 MILLIGRAM, TID
     Route: 048
     Dates: start: 20220705
  6. VITAMIN D [Concomitant]
     Active Substance: VITAMIN D NOS
     Indication: Prophylaxis
     Dosage: 1000.00 INTERNATIONAL UNIT, QD
     Route: 048
     Dates: start: 201703
  7. INFLIXIMAB [Concomitant]
     Active Substance: INFLIXIMAB
     Indication: Gastrointestinal disorder
     Dosage: 100.00 MILLIGRAM, MONTHLY
     Route: 042
     Dates: start: 20210211
  8. ESOMEPRAZOLE [Concomitant]
     Active Substance: ESOMEPRAZOLE
     Indication: Gastrointestinal inflammation
     Dosage: 10.00 MILLIGRAM, BID
     Route: 048
     Dates: start: 20230224
  9. OMEPRAZOLE [Concomitant]
     Active Substance: OMEPRAZOLE
     Indication: Gastrointestinal inflammation
     Dosage: 10.00 MILLIGRAM, QD
     Route: 048
     Dates: start: 20230215, end: 20230224
  10. BUDESONIDE [Concomitant]
     Active Substance: BUDESONIDE
     Indication: Gastrointestinal inflammation
     Dosage: 5 MILLIGRAM, QD
     Route: 050
     Dates: start: 20230217
  11. TAZOBACTAM [Concomitant]
     Active Substance: TAZOBACTAM
     Indication: Gastroenteritis
     Dosage: UNK
     Route: 042
     Dates: start: 20230127, end: 20230127
  12. PIPERACILLIN [Concomitant]
     Active Substance: PIPERACILLIN
     Indication: Gastroenteritis
     Dosage: UNK
     Route: 042
     Dates: start: 20230123, end: 20230127

REACTIONS (2)
  - Crohn^s disease [Recovered/Resolved]
  - Gastroenteritis [Recovered/Resolved]

NARRATIVE: CASE EVENT DATE: 20230120
